FAERS Safety Report 6568441-4 (Version None)
Quarter: 2010Q1

REPORT INFORMATION
  Report Type: 
  Country: None (occurrence: None)
  Receive Date: 20100203
  Receipt Date: 20100125
  Transmission Date: 20100710
  Serious: Yes (Death, Life-Threatening, Hospitalization, Disabling)
  Sender: FDA-Public Use
  Company Number: A0817449A

PATIENT
  Age: 65 Year
  Sex: Male
  Weight: 98.6 kg

DRUGS (19)
  1. ADVAIR DISKUS 100/50 [Suspect]
     Indication: CHRONIC OBSTRUCTIVE PULMONARY DISEASE
     Dosage: 1PUFF TWICE PER DAY
     Route: 048
     Dates: start: 20080219, end: 20091107
  2. XOPENEX [Concomitant]
     Route: 048
  3. SPIRIVA [Concomitant]
  4. ENALAPRIL MALEATE [Concomitant]
     Dosage: 1TAB TWICE PER DAY
     Route: 048
  5. ASPIRIN [Concomitant]
     Dosage: 1TAB PER DAY
     Route: 048
  6. ULTRAM [Concomitant]
     Indication: PAIN
  7. AMBIEN [Concomitant]
     Dosage: 1TAB AS REQUIRED
  8. PEPCID [Concomitant]
     Dosage: 1TAB PER DAY
     Route: 048
  9. HYDRALAZINE [Concomitant]
     Dosage: 1TAB FOUR TIMES PER DAY
     Route: 048
  10. COLACE [Concomitant]
     Dosage: 1TAB TWICE PER DAY
     Route: 048
  11. PERCOCET [Concomitant]
  12. COREG [Concomitant]
     Dosage: 12.5MG TWICE PER DAY
     Route: 048
  13. IMDUR [Concomitant]
     Dosage: 1TAB PER DAY
     Route: 048
  14. ZOCOR [Concomitant]
     Dosage: 1TAB PER DAY
     Route: 048
  15. PLAVIX [Concomitant]
     Dosage: 1TAB PER DAY
     Route: 048
  16. VIAGRA [Concomitant]
  17. NORVASC [Concomitant]
     Dosage: 1TAB PER DAY
     Route: 048
  18. PROMETHAZINE [Concomitant]
  19. FUROSEMIDE [Concomitant]

REACTIONS (12)
  - BACK PAIN [None]
  - CARDIAC FAILURE CONGESTIVE [None]
  - CERVICAL SPINAL STENOSIS [None]
  - CHRONIC OBSTRUCTIVE PULMONARY DISEASE [None]
  - ERECTILE DYSFUNCTION [None]
  - GASTROOESOPHAGEAL REFLUX DISEASE [None]
  - HYPERTENSION [None]
  - METASTASES TO CENTRAL NERVOUS SYSTEM [None]
  - NAUSEA [None]
  - OEDEMA PERIPHERAL [None]
  - RENAL FAILURE [None]
  - SMALL CELL LUNG CANCER STAGE UNSPECIFIED [None]
